FAERS Safety Report 9147012 (Version 1)
Quarter: 2013Q1

REPORT INFORMATION
  Report Type: Spontaneous
  Country: US (occurrence: US)
  Receive Date: 20130307
  Receipt Date: 20130307
  Transmission Date: 20140127
  Serious: Yes (Other)
  Sender: FDA-Public Use
  Company Number: US-SHIRE-ALL1-2013-01203

PATIENT
  Age: 8 Year
  Sex: Male

DRUGS (3)
  1. INTUNIV [Suspect]
     Indication: PRODUCT USED FOR UNKNOWN INDICATION
     Dosage: 3 MG, UNKNOWN
     Route: 048
  2. INTUNIV [Suspect]
     Dosage: 2 MG, UNKNOWN
     Route: 048
  3. INTUNIV [Suspect]
     Dosage: 1 MG, UNKNOWN
     Route: 048

REACTIONS (1)
  - Hallucination, auditory [Unknown]
